FAERS Safety Report 4337244-3 (Version None)
Quarter: 2004Q2

REPORT INFORMATION
  Report Type: 
  Country: None (occurrence: None)
  Receive Date: 20040407
  Receipt Date: 20040105
  Transmission Date: 20050107
  Serious: Yes (Hospitalization)
  Sender: FDA-Public Use
  Company Number: ESP-BUS-154

PATIENT
  Age: 48 Year
  Sex: Male

DRUGS (10)
  1. BUSULFEX [Suspect]
     Dosage: 42 MG DAILY ORAL
     Route: 048
  2. ETANERCEPT [Suspect]
     Indication: GRAFT VERSUS HOST DISEASE
     Dates: start: 20031107
  3. CYCLOPHOSPHAMIDE [Suspect]
     Dosage: 4860 DAILY
     Dates: start: 20031110, end: 20031111
  4. URSODEOXYCHOLIC ACID [Concomitant]
  5. METHYLPREDNISOLONE SODIUM SUCCINATE [Concomitant]
  6. TRIAMCINOLONE [Concomitant]
  7. LANSOPRAZOLE [Concomitant]
  8. CYCLOSPORINE [Concomitant]
  9. FLUCONAZOLE [Concomitant]
  10. IMIPENEM [Concomitant]

REACTIONS (1)
  - BUNDLE BRANCH BLOCK [None]
